FAERS Safety Report 18199008 (Version 1)
Quarter: 2020Q3

REPORT INFORMATION
  Report Type: Spontaneous
  Country: US (occurrence: US)
  Receive Date: 20200826
  Receipt Date: 20200826
  Transmission Date: 20201103
  Serious: Yes (Death, Other)
  Sender: FDA-Public Use
  Company Number: US-PURDUE-USA-2020-0162808

PATIENT
  Age: 54 Year
  Sex: Female

DRUGS (1)
  1. OXYCONTIN [Suspect]
     Active Substance: OXYCODONE HYDROCHLORIDE
     Indication: PRODUCT USED FOR UNKNOWN INDICATION
     Dosage: UNK
     Route: 048

REACTIONS (8)
  - Overdose [Unknown]
  - Intervertebral disc disorder [Unknown]
  - Foot fracture [Unknown]
  - Pain [Unknown]
  - Arteriosclerosis coronary artery [Fatal]
  - Acute myocardial infarction [Fatal]
  - Arthritis [Unknown]
  - Drug dependence [Unknown]

NARRATIVE: CASE EVENT DATE: 20150429
